FAERS Safety Report 10560908 (Version 2)
Quarter: 2014Q4

REPORT INFORMATION
  Report Type: Spontaneous
  Country: US (occurrence: US)
  Receive Date: 20141103
  Receipt Date: 20141218
  Transmission Date: 20150529
  Serious: Yes (Hospitalization)
  Sender: FDA-Public Use
  Company Number: US-BAYER-2014-160656

PATIENT
  Age: 23 Year
  Sex: Female

DRUGS (8)
  1. MIRENA [Suspect]
     Active Substance: LEVONORGESTREL
     Indication: MENORRHAGIA
  2. PHENERGAN [Concomitant]
     Active Substance: PROMETHAZINE HYDROCHLORIDE
     Dosage: 12.5 MG, UNK
     Route: 030
     Dates: start: 20100508
  3. ULTRAM [Concomitant]
     Active Substance: TRAMADOL HYDROCHLORIDE
  4. ROXICET [Concomitant]
     Active Substance: ACETAMINOPHEN\OXYCODONE HYDROCHLORIDE
     Indication: PAIN
     Dosage: 325 MG/5 MG ONE TO TWO PILLS EVERY 4-6 HOURS AS NEEDED
  5. MIRENA [Suspect]
     Active Substance: LEVONORGESTREL
     Indication: CONTRACEPTION
     Dosage: 20 MCG/24HR, CONT
     Route: 015
     Dates: start: 20090807, end: 20100609
  6. PERCOCET [Concomitant]
     Active Substance: ACETAMINOPHEN\OXYCODONE HYDROCHLORIDE
     Dosage: 5 MG, PRN
  7. MOTRIN [Concomitant]
     Active Substance: IBUPROFEN
     Indication: PAIN
     Dosage: 600 MG EVERY 4 TO 6 HOURS AS NEEDED
  8. DILAUDID [Concomitant]
     Active Substance: HYDROMORPHONE HYDROCHLORIDE
     Dosage: 1 MG, UNK
     Route: 030
     Dates: start: 20100508

REACTIONS (12)
  - Pelvic pain [None]
  - Abdominal pain [None]
  - Fear [None]
  - Internal injury [None]
  - Injury [None]
  - Uterine perforation [None]
  - Medical device discomfort [None]
  - Depression [None]
  - Depressed mood [None]
  - Genital haemorrhage [None]
  - Emotional distress [None]
  - Anxiety [None]

NARRATIVE: CASE EVENT DATE: 201005
